FAERS Safety Report 19036923 (Version 3)
Quarter: 2024Q1

REPORT INFORMATION
  Report Type: Spontaneous
  Country: CA (occurrence: CA)
  Receive Date: 20210322
  Receipt Date: 20240206
  Transmission Date: 20240410
  Serious: Yes (Hospitalization, Other)
  Sender: FDA-Public Use
  Company Number: CA-BAUSCH-BL-2021-008483

PATIENT
  Age: 56 Year
  Sex: Female
  Weight: 80 kg

DRUGS (58)
  1. ALBUTEROL [Suspect]
     Active Substance: ALBUTEROL
     Indication: Asthma
     Dosage: SALBUTAMOL SULFATE
     Route: 065
  2. ALBUTEROL [Suspect]
     Active Substance: ALBUTEROL
     Dosage: SALBUTAMOL
     Route: 065
  3. ADVAIR HFA [Suspect]
     Active Substance: FLUTICASONE PROPIONATE\SALMETEROL XINAFOATE
     Indication: Asthma
     Route: 065
  4. ADVAIR HFA [Suspect]
     Active Substance: FLUTICASONE PROPIONATE\SALMETEROL XINAFOATE
     Route: 065
  5. ADVAIR HFA [Suspect]
     Active Substance: FLUTICASONE PROPIONATE\SALMETEROL XINAFOATE
     Route: 065
  6. ALVESCO [Suspect]
     Active Substance: CICLESONIDE
     Indication: Product used for unknown indication
     Dosage: METERED DOSE
     Route: 055
  7. ALVESCO [Suspect]
     Active Substance: CICLESONIDE
     Route: 055
  8. ALVESCO [Suspect]
     Active Substance: CICLESONIDE
     Dosage: METERED DOSE
     Route: 055
  9. ATROVENT [Suspect]
     Active Substance: IPRATROPIUM BROMIDE
     Indication: Product used for unknown indication
     Route: 065
  10. FLUTICASONE FUROATE [Suspect]
     Active Substance: FLUTICASONE FUROATE
     Indication: Asthma
     Dosage: SPRAY METERED DOSE
     Route: 065
  11. FLOVENT [Suspect]
     Active Substance: FLUTICASONE PROPIONATE
     Indication: Asthma
     Dosage: ONCE IN 0.5 DAYS
     Route: 065
  12. FLOVENT [Suspect]
     Active Substance: FLUTICASONE PROPIONATE
     Route: 065
  13. FLOVENT [Suspect]
     Active Substance: FLUTICASONE PROPIONATE
     Dosage: FLOVENT DISKUS
     Route: 065
  14. FLOVENT [Suspect]
     Active Substance: FLUTICASONE PROPIONATE
     Dosage: FLOVENT DISKUS
     Route: 065
  15. GLYCOPYRROLATE [Suspect]
     Active Substance: GLYCOPYRROLATE
     Indication: Product used for unknown indication
     Route: 055
  16. GLYCOPYRROLATE [Suspect]
     Active Substance: GLYCOPYRROLATE
     Route: 055
  17. GLYCOPYRROLATE [Suspect]
     Active Substance: GLYCOPYRROLATE
     Route: 065
  18. PREDNISONE [Suspect]
     Active Substance: PREDNISONE
     Indication: Product used for unknown indication
     Route: 048
  19. PREDNISONE [Suspect]
     Active Substance: PREDNISONE
     Route: 048
  20. PREDNISONE [Suspect]
     Active Substance: PREDNISONE
     Route: 065
  21. SINGULAIR [Suspect]
     Active Substance: MONTELUKAST SODIUM
     Indication: Product used for unknown indication
     Route: 065
  22. SINGULAIR [Suspect]
     Active Substance: MONTELUKAST SODIUM
     Route: 065
  23. SINGULAIR [Suspect]
     Active Substance: MONTELUKAST SODIUM
     Route: 048
  24. SYMBICORT [Suspect]
     Active Substance: BUDESONIDE\FORMOTEROL FUMARATE DIHYDRATE
     Indication: Product used for unknown indication
     Route: 055
  25. SYMBICORT [Suspect]
     Active Substance: BUDESONIDE\FORMOTEROL FUMARATE DIHYDRATE
     Route: 055
  26. SYMBICORT [Suspect]
     Active Substance: BUDESONIDE\FORMOTEROL FUMARATE DIHYDRATE
     Route: 055
  27. THEOPHYLLINE ANHYDROUS [Suspect]
     Active Substance: THEOPHYLLINE ANHYDROUS
     Indication: Product used for unknown indication
     Route: 065
  28. THEOPHYLLINE ANHYDROUS [Suspect]
     Active Substance: THEOPHYLLINE ANHYDROUS
     Dosage: TABLET (EXTENDEDRELEASE)
     Route: 065
  29. THEOPHYLLINE ANHYDROUS [Suspect]
     Active Substance: THEOPHYLLINE ANHYDROUS
     Dosage: TEVA-THEOPHYLLINE SR TABLET (EXTENDEDRELEASE)
     Route: 065
  30. UNIPHYL [Suspect]
     Active Substance: THEOPHYLLINE ANHYDROUS
     Indication: Product used for unknown indication
     Dosage: EXTENDED RELEASE
     Route: 065
  31. BUDESONIDE\FORMOTEROL FUMARATE [Suspect]
     Active Substance: BUDESONIDE\FORMOTEROL FUMARATE
     Indication: Product used for unknown indication
     Route: 065
  32. BUDESONIDE\FORMOTEROL FUMARATE [Suspect]
     Active Substance: BUDESONIDE\FORMOTEROL FUMARATE
     Route: 065
  33. CICLESONIDE [Suspect]
     Active Substance: CICLESONIDE
     Indication: Product used for unknown indication
     Route: 065
  34. MONTELUKAST SODIUM [Suspect]
     Active Substance: MONTELUKAST SODIUM
     Indication: Product used for unknown indication
     Route: 065
  35. CETIRIZINE HYDROCHLORIDE [Concomitant]
     Active Substance: CETIRIZINE HYDROCHLORIDE
     Indication: Hypersensitivity
  36. DULOXETINE HYDROCHLORIDE [Concomitant]
     Active Substance: DULOXETINE HYDROCHLORIDE
     Indication: Depression
     Route: 048
  37. DULOXETINE HYDROCHLORIDE [Concomitant]
     Active Substance: DULOXETINE HYDROCHLORIDE
     Route: 048
  38. DULOXETINE HYDROCHLORIDE [Concomitant]
     Active Substance: DULOXETINE HYDROCHLORIDE
     Dosage: DULOXETINE DR, CAPSULE, DELAYED?RELEASE
     Route: 048
  39. ERGOCALCIFEROL [Concomitant]
     Active Substance: ERGOCALCIFEROL
     Indication: Product used for unknown indication
     Route: 048
  40. ERGOCALCIFEROL [Concomitant]
     Active Substance: ERGOCALCIFEROL
     Route: 048
  41. AMLODIPINE\HYDROCHLOROTHIAZIDE\VALSARTAN [Concomitant]
     Active Substance: AMLODIPINE\HYDROCHLOROTHIAZIDE\VALSARTAN
     Indication: Product used for unknown indication
     Route: 065
  42. AMLODIPINE\HYDROCHLOROTHIAZIDE\VALSARTAN [Concomitant]
     Active Substance: AMLODIPINE\HYDROCHLOROTHIAZIDE\VALSARTAN
     Route: 065
  43. BUPROPION HYDROCHLORIDE [Concomitant]
     Active Substance: BUPROPION HYDROCHLORIDE
     Indication: Depression
     Route: 048
  44. BUPROPION HYDROCHLORIDE [Concomitant]
     Active Substance: BUPROPION HYDROCHLORIDE
     Dosage: BUPROPION XL, TABLET (EXTENDEDRELEASE)
     Route: 048
  45. ESOMEPRAZOLE MAGNESIUM [Concomitant]
     Active Substance: ESOMEPRAZOLE\ESOMEPRAZOLE MAGNESIUM\ESOMEPRAZOLE MAGNESIUM DIHYDRATE
     Indication: Gastrooesophageal reflux disease
     Route: 065
  46. PANTOPRAZOLE SODIUM ANHYDROUS [Concomitant]
     Active Substance: PANTOPRAZOLE SODIUM ANHYDROUS
     Indication: Product used for unknown indication
     Dosage: ONCE IN 0.5 DAYS
     Route: 048
  47. PANTOPRAZOLE SODIUM ANHYDROUS [Concomitant]
     Active Substance: PANTOPRAZOLE SODIUM ANHYDROUS
     Dosage: ONCE IN 0.5 DAYS
     Route: 048
  48. PANTOPRAZOLE SODIUM ANHYDROUS [Concomitant]
     Active Substance: PANTOPRAZOLE SODIUM ANHYDROUS
     Dosage: PANTOPRAZOLE SODIUM
     Route: 048
  49. PANTOPRAZOLE SODIUM ANHYDROUS [Concomitant]
     Active Substance: PANTOPRAZOLE SODIUM ANHYDROUS
     Dosage: PANTOPRAZOLE SODIUM
     Route: 048
  50. PANTOPRAZOLE SODIUM ANHYDROUS [Concomitant]
     Active Substance: PANTOPRAZOLE SODIUM ANHYDROUS
     Dosage: NOT SPECIFIED
     Route: 065
  51. PAROXETINE HYDROCHLORIDE [Concomitant]
     Active Substance: PAROXETINE HYDROCHLORIDE\PAROXETINE HYDROCHLORIDE ANHYDROUS
     Indication: Product used for unknown indication
     Route: 065
  52. PREMARIN [Concomitant]
     Active Substance: ESTROGENS, CONJUGATED
     Indication: Product used for unknown indication
     Route: 048
  53. VALSARTAN [Concomitant]
     Active Substance: VALSARTAN
     Indication: Product used for unknown indication
     Route: 048
  54. VALSARTAN [Concomitant]
     Active Substance: VALSARTAN
     Route: 048
  55. VALSARTAN [Concomitant]
     Active Substance: VALSARTAN
     Route: 065
  56. CHLORPHENIRAMINE MALEATE [Concomitant]
     Active Substance: CHLORPHENIRAMINE MALEATE
     Indication: Hypersensitivity
  57. HYDROCHLOROTHIAZIDE\VALSARTAN [Concomitant]
     Active Substance: HYDROCHLOROTHIAZIDE\VALSARTAN
     Indication: Product used for unknown indication
  58. ESTROGENS, CONJUGATED\MEDROGESTONE [Concomitant]
     Active Substance: ESTROGENS, CONJUGATED\MEDROGESTONE
     Indication: Hypersensitivity

REACTIONS (28)
  - Asthma [Unknown]
  - Affective disorder [Unknown]
  - Ankle fracture [Unknown]
  - Breath sounds abnormal [Unknown]
  - Bronchial disorder [Unknown]
  - Bronchial haemorrhage [Unknown]
  - Bronchial neoplasm [Unknown]
  - Condition aggravated [Unknown]
  - Dyspnoea [Unknown]
  - Endometrial ablation [Unknown]
  - Granuloma [Unknown]
  - Herpes zoster [Unknown]
  - Infection [Unknown]
  - Lower respiratory tract infection [Unknown]
  - Nasal turbinate hypertrophy [Unknown]
  - Obstructive airways disorder [Unknown]
  - Oxygen saturation decreased [Unknown]
  - Rhonchi [Unknown]
  - Weight increased [Unknown]
  - Wheezing [Unknown]
  - Nasal congestion [Unknown]
  - Respiratory disorder [Unknown]
  - Rhinitis [Unknown]
  - Sinusitis [Unknown]
  - Sinus tachycardia [Unknown]
  - Hypersensitivity [Unknown]
  - Therapeutic product effect incomplete [Unknown]
  - Maternal exposure during pregnancy [Unknown]
